FAERS Safety Report 5642953-X (Version None)
Quarter: 2008Q1

REPORT INFORMATION
  Report Type: 
  Country: None (occurrence: None)
  Receive Date: 20080227
  Receipt Date: 20080227
  Transmission Date: 20080703
  Serious: Yes (Death)
  Sender: FDA-Public Use
  Company Number: None

PATIENT
  Age: 80 Year
  Sex: Male
  Weight: 73 kg

DRUGS (1)
  1. NAROPIN [Suspect]
     Indication: PAIN MANAGEMENT
     Dosage: 20 MG EVERY HOUR TOP
     Route: 061
     Dates: start: 20080209, end: 20080215

REACTIONS (7)
  - ARRHYTHMIA [None]
  - CARDIAC ARREST [None]
  - COORDINATION ABNORMAL [None]
  - DRUG LEVEL INCREASED [None]
  - FALL [None]
  - HYPOVENTILATION [None]
  - SINUS TACHYCARDIA [None]
